FAERS Safety Report 7072435-2 (Version None)
Quarter: 2010Q4

REPORT INFORMATION
  Report Type: 
  Country: None (occurrence: None)
  Receive Date: 20101029
  Receipt Date: 20100303
  Transmission Date: 20110411
  Serious: No
  Sender: FDA-Public Use
  Company Number: A0841492A

PATIENT
  Age: 76 Year
  Sex: Female

DRUGS (6)
  1. ADVAIR DISKUS 100/50 [Suspect]
     Indication: PRODUCT USED FOR UNKNOWN INDICATION
     Dosage: 1PUFF TWICE PER DAY
     Route: 055
     Dates: start: 20050501
  2. FOSAMAX [Concomitant]
  3. FOSINOPRIL SODIUM [Concomitant]
  4. DILTIAZEM CD [Concomitant]
  5. POTASSIUM CHLORIDE [Concomitant]
  6. SIMVASTATIN [Concomitant]

REACTIONS (2)
  - CHEST DISCOMFORT [None]
  - PRODUCT QUALITY ISSUE [None]
